FAERS Safety Report 18736783 (Version 2)
Quarter: 2022Q1

REPORT INFORMATION
  Report Type: Spontaneous
  Country: US (occurrence: US)
  Receive Date: 20210113
  Receipt Date: 20220311
  Transmission Date: 20220424
  Serious: Yes (Other)
  Sender: FDA-Public Use
  Company Number: US-GLAXOSMITHKLINE-US2020GSK257178

PATIENT
  Age: 61 Year
  Sex: Female

DRUGS (12)
  1. RANITIDINE [Suspect]
     Active Substance: RANITIDINE
     Dosage: 150 MG BOTH
     Route: 065
     Dates: start: 201707, end: 202001
  2. RANITIDINE [Suspect]
     Active Substance: RANITIDINE
     Dosage: UNK
  3. RANITIDINE [Suspect]
     Active Substance: RANITIDINE
     Dosage: 150 MG, QD
     Route: 065
     Dates: start: 201707, end: 202001
  4. RANITIDINE [Suspect]
     Active Substance: RANITIDINE
     Dosage: 150 MG BOTH
     Route: 065
     Dates: start: 201707, end: 202001
  5. RANITIDINE [Suspect]
     Active Substance: RANITIDINE
     Dosage: UNK
  6. RANITIDINE [Suspect]
     Active Substance: RANITIDINE
     Dosage: 150 MG, QD
     Route: 065
     Dates: start: 201707, end: 202001
  7. RANITIDINE [Suspect]
     Active Substance: RANITIDINE
     Dosage: 150 MG BOTH
     Route: 065
     Dates: start: 201707, end: 202001
  8. RANITIDINE [Suspect]
     Active Substance: RANITIDINE
     Dosage: UNK
  9. RANITIDINE [Suspect]
     Active Substance: RANITIDINE
     Dosage: 150 MG, QD
     Route: 065
     Dates: start: 201707, end: 202001
  10. RANITIDINE [Suspect]
     Active Substance: RANITIDINE
     Dosage: 150 MG BOTH
     Route: 065
     Dates: start: 201707, end: 202001
  11. RANITIDINE [Suspect]
     Active Substance: RANITIDINE
     Dosage: UNK
  12. RANITIDINE [Suspect]
     Active Substance: RANITIDINE
     Dosage: 150 MG, QD
     Route: 065
     Dates: start: 201707, end: 202001

REACTIONS (3)
  - Gastric cancer [Unknown]
  - Colon cancer [Unknown]
  - Colon cancer [Unknown]

NARRATIVE: CASE EVENT DATE: 20200601
